FAERS Safety Report 12202774 (Version 6)
Quarter: 2025Q1

REPORT INFORMATION
  Report Type: Report from Study
  Country: CA (occurrence: CA)
  Receive Date: 20160322
  Receipt Date: 20250311
  Transmission Date: 20250409
  Serious: Yes (Other)
  Sender: TAKEDA
  Company Number: CA-TAKEDA-2015TUS013644

PATIENT
  Sex: Male

DRUGS (7)
  1. VEDOLIZUMAB [Suspect]
     Active Substance: VEDOLIZUMAB
     Indication: Colitis ulcerative
     Dates: start: 20150901, end: 20160421
  2. VEDOLIZUMAB [Suspect]
     Active Substance: VEDOLIZUMAB
     Dosage: 300 MILLIGRAM, Q4WEEKS
     Dates: start: 20160526
  3. VEDOLIZUMAB [Suspect]
     Active Substance: VEDOLIZUMAB
  4. VEDOLIZUMAB [Suspect]
     Active Substance: VEDOLIZUMAB
     Dosage: 300 MILLIGRAM, Q4WEEKS
     Dates: start: 20171027
  5. VEDOLIZUMAB [Suspect]
     Active Substance: VEDOLIZUMAB
     Dosage: 300 MILLIGRAM, Q4WEEKS
     Dates: start: 20241018
  6. IRON [Concomitant]
     Active Substance: IRON
  7. PREDNISONE [Concomitant]
     Active Substance: PREDNISONE
     Dosage: 200 MILLIGRAM, Q2WEEKS

REACTIONS (17)
  - Pancreatitis [Unknown]
  - Pain in jaw [Unknown]
  - Peripheral swelling [Unknown]
  - Arthritis [Unknown]
  - Arthralgia [Recovered/Resolved]
  - Off label use [Unknown]
  - Erythema of eyelid [Unknown]
  - Dry eye [Unknown]
  - Dry throat [Unknown]
  - Acne cystic [Recovering/Resolving]
  - Eye discharge [Unknown]
  - Nasal congestion [Recovered/Resolved]
  - Asthenia [Unknown]
  - Pain in extremity [Unknown]
  - Cough [Not Recovered/Not Resolved]
  - Influenza [Recovered/Resolved]
  - Pyrexia [Recovered/Resolved]

NARRATIVE: CASE EVENT DATE: 20150101
